FAERS Safety Report 8342417-9 (Version None)
Quarter: 2012Q2

REPORT INFORMATION
  Report Type: 
  Country: None (occurrence: None)
  Receive Date: 20120508
  Receipt Date: 20120427
  Transmission Date: 20120825
  Serious: Yes (Hospitalization)
  Sender: FDA-Public Use
  Company Number: US-BIOGENIDEC-2012BI013284

PATIENT
  Age: 51 Year
  Sex: Female

DRUGS (2)
  1. BLOOD PRESSURE MEDICATION (NOS) [Concomitant]
     Indication: HYPERTENSION
  2. TYSABRI [Suspect]
     Indication: MULTIPLE SCLEROSIS
     Route: 042
     Dates: start: 20120120

REACTIONS (3)
  - NEURALGIA [None]
  - INCORRECT DRUG ADMINISTRATION RATE [None]
  - MULTIPLE SCLEROSIS RELAPSE [None]
